FAERS Safety Report 4591078-3 (Version None)
Quarter: 2005Q1

REPORT INFORMATION
  Report Type: 
  Country: None (occurrence: None)
  Receive Date: 20050225
  Receipt Date: 20050218
  Transmission Date: 20050727
  Serious: Yes (Other)
  Sender: FDA-Public Use
  Company Number: 200511538GDDC

PATIENT
  Age: 62 Year
  Sex: Male

DRUGS (1)
  1. RIFAMPIN [Suspect]
     Indication: TUBERCULOSIS
     Dosage: DOSE: UNK

REACTIONS (1)
  - HYPOTHYROIDISM [None]
